FAERS Safety Report 5608029-2 (Version None)
Quarter: 2008Q1

REPORT INFORMATION
  Report Type: 
  Country: None (occurrence: None)
  Receive Date: 20080130
  Receipt Date: 20080101
  Transmission Date: 20080703
  Serious: Yes (Hospitalization)
  Sender: FDA-Public Use
  Company Number: IL-TEVA-165605ISR

PATIENT
  Age: 23 Year
  Sex: Male

DRUGS (1)
  1. LORATADINE [Suspect]
     Indication: SCRATCH
     Route: 048
     Dates: start: 20071205, end: 20071215

REACTIONS (5)
  - ACUTE MYELOID LEUKAEMIA [None]
  - ASTHENIA [None]
  - FATIGUE [None]
  - MUSCULOSKELETAL STIFFNESS [None]
  - OEDEMA PERIPHERAL [None]
